FAERS Safety Report 5216894-6 (Version None)
Quarter: 2007Q1

REPORT INFORMATION
  Report Type: 
  Country: None (occurrence: None)
  Receive Date: 20070119
  Receipt Date: 20070105
  Transmission Date: 20070707
  Serious: Yes (Death, Other)
  Sender: FDA-Public Use
  Company Number: 2007JP000075

PATIENT
  Age: 10 Year
  Sex: Male

DRUGS (17)
  1. PROGRAF [Suspect]
     Indication: STEM CELL TRANSPLANT
  2. CYCLOSPORINE [Concomitant]
  3. PREDNISOLONE [Concomitant]
  4. CIDOFOVIR [Concomitant]
  5. PROBENECID [Concomitant]
  6. SULFAMETHOXAZOLE + TRIMETHOPRIM [Concomitant]
  7. PARACETAMOL [Concomitant]
  8. CIPROFLOXACIN [Concomitant]
  9. NEUPOGEN [Concomitant]
  10. AMPHOTERICIN B [Concomitant]
  11. ONDANSETRON [Concomitant]
  12. OMEPRAZOLE [Concomitant]
  13. RANITIDINE HCL [Concomitant]
  14. AMOXICILLIN W/CLAVULANIC ACID) [Concomitant]
  15. CEPHALOTHIN [Concomitant]
  16. TEICOPLATIN [Concomitant]
  17. CLAVULANIC ACID W/TICARCILLIN) [Concomitant]

REACTIONS (4)
  - ADENOVIRUS INFECTION [None]
  - BACTERIAL INFECTION [None]
  - CULTURE STOOL POSITIVE [None]
  - PANCREATITIS ACUTE [None]
